FAERS Safety Report 8670052 (Version 5)
Quarter: 2015Q1

REPORT INFORMATION
  Report Type: Report from Study
  Country: JP (occurrence: JP)
  Receive Date: 20120718
  Receipt Date: 20150130
  Transmission Date: 20150721
  Serious: Yes (Other)
  Sender: FDA-Public Use
  Company Number: JP-009507513-1207JPN005096

PATIENT
  Age: 42 Year
  Sex: Female
  Weight: 55 kg

DRUGS (12)
  1. RINDERON VG [Concomitant]
     Active Substance: BETAMETHASONE VALERATE\GENTAMICIN SULFATE
     Indication: PUSTULAR PSORIASIS
     Dosage: DAILY DOSE UNKNOWN, BID
     Route: 061
     Dates: start: 20111108
  2. METGLUCO [Concomitant]
     Active Substance: METFORMIN HYDROCHLORIDE
     Dosage: 1 G, BID
     Route: 048
     Dates: start: 20131108
  3. METGLUCO [Concomitant]
     Active Substance: METFORMIN HYDROCHLORIDE
     Dosage: UNK
  4. JANUVIA [Suspect]
     Active Substance: SITAGLIPTIN PHOSPHATE
     Indication: TYPE 2 DIABETES MELLITUS
     Dosage: 50 MG, QD
     Route: 048
     Dates: start: 20111123
  5. METGLUCO [Concomitant]
     Active Substance: METFORMIN HYDROCHLORIDE
     Indication: TYPE 2 DIABETES MELLITUS
     Dosage: 250 MG, BID
     Route: 048
     Dates: start: 20111114, end: 20120130
  6. LANTUS [Concomitant]
     Active Substance: INSULIN GLARGINE
     Indication: TYPE 2 DIABETES MELLITUS
     Dosage: 14 (UNDER1000UNIT), QD
     Route: 058
     Dates: start: 20111114, end: 20111122
  7. METGLUCO [Concomitant]
     Active Substance: METFORMIN HYDROCHLORIDE
     Dosage: 750 MG, BID
     Route: 048
     Dates: start: 20121130, end: 20130912
  8. METGLUCO [Concomitant]
     Active Substance: METFORMIN HYDROCHLORIDE
     Dosage: 750 MG, TID
     Route: 048
     Dates: start: 20130913, end: 20131107
  9. ALLELOCK [Concomitant]
     Active Substance: OLOPATADINE HYDROCHLORIDE
     Indication: PUSTULAR PSORIASIS
     Dosage: 20 MG, DIVIDED DOSE FREQUENCY UNKNOWN
     Route: 048
     Dates: start: 20111227
  10. BIOTIN [Concomitant]
     Active Substance: BIOTIN
     Indication: PUSTULAR PSORIASIS
     Dosage: 0.3 G, TID
     Route: 048
     Dates: start: 20111227
  11. KERATINAMIN [Concomitant]
     Active Substance: UREA
     Indication: PUSTULAR PSORIASIS
     Dosage: UNK, BID
     Route: 061
     Dates: start: 20111227
  12. METGLUCO [Concomitant]
     Active Substance: METFORMIN HYDROCHLORIDE
     Dosage: 250 MG, QID
     Route: 048
     Dates: start: 20120131, end: 20121129

REACTIONS (16)
  - Constipation [Recovering/Resolving]
  - Bronchitis [Recovered/Resolved]
  - Tonsillitis [Recovered/Resolved]
  - Diabetes mellitus [Not Recovered/Not Resolved]
  - Upper respiratory tract inflammation [Recovered/Resolved]
  - Diabetes mellitus [Recovering/Resolving]
  - Diabetes mellitus [Recovering/Resolving]
  - Cervix carcinoma [Recovering/Resolving]
  - Gastrooesophageal reflux disease [Recovering/Resolving]
  - Nasopharyngitis [Recovered/Resolved]
  - Upper respiratory tract inflammation [Recovered/Resolved]
  - Tension headache [Recovered/Resolved]
  - Cystitis [Recovered/Resolved]
  - Diabetes mellitus [Not Recovered/Not Resolved]
  - Diabetes mellitus [Recovering/Resolving]
  - Diabetes mellitus [Not Recovered/Not Resolved]

NARRATIVE: CASE EVENT DATE: 20120131
